FAERS Safety Report 14342755 (Version 1)
Quarter: 2018Q1

REPORT INFORMATION
  Report Type: Spontaneous
  Country: US (occurrence: US)
  Receive Date: 20180102
  Receipt Date: 20180102
  Transmission Date: 20180509
  Serious: Yes (Other)
  Sender: FDA-Public Use
  Company Number: US-JNJFOC-20171236232

PATIENT
  Sex: Male

DRUGS (35)
  1. ZOFRAN [Concomitant]
     Active Substance: ONDANSETRON HYDROCHLORIDE
     Indication: NAUSEA
     Dosage: 1 DF, EVERY 6 HOURS AS NEEDED
     Route: 060
  2. IMBRUVICA [Suspect]
     Active Substance: IBRUTINIB
     Indication: CHRONIC LYMPHOCYTIC LEUKAEMIA
     Route: 048
     Dates: end: 20171107
  3. PRESERVISION AREDS [Concomitant]
     Active Substance: MINERALS\VITAMINS
     Dosage: 1 DF, BID
     Route: 048
     Dates: start: 20171108
  4. PLAVIX [Concomitant]
     Active Substance: CLOPIDOGREL BISULFATE
     Dosage: 75 MG, QD WITH SUPPER
     Route: 048
     Dates: end: 20171107
  5. FISH OIL W/TOCOPHEROL [Concomitant]
     Route: 048
  6. ENULOSE [Concomitant]
     Active Substance: LACTULOSE
     Indication: CONSTIPATION
     Dosage: 10 G, QD (10 GM/15 ML)
     Route: 048
  7. MIRALAX [Concomitant]
     Active Substance: POLYETHYLENE GLYCOL 3350
     Dosage: 17 G/DOSE POWDER, DISSOLVE IN 8 OUNCES OF FLUID AND DRINK ENTIRE LIQUID
     Dates: end: 20171108
  8. MAG-OX [Concomitant]
     Active Substance: MAGNESIUM OXIDE
     Route: 048
  9. PRED FORTE [Concomitant]
     Active Substance: PREDNISOLONE ACETATE
  10. IMBRUVICA [Suspect]
     Active Substance: IBRUTINIB
     Indication: B-CELL SMALL LYMPHOCYTIC LYMPHOMA
     Route: 048
     Dates: end: 20171107
  11. CYANOCOBALAMIN. [Concomitant]
     Active Substance: CYANOCOBALAMIN
     Route: 060
     Dates: end: 20171108
  12. VITAMIN D3 [Concomitant]
     Active Substance: CHOLECALCIFEROL
     Dosage: 1 DF, QD WITH LUNCH
     Route: 048
     Dates: end: 20171108
  13. PROSCAR [Concomitant]
     Active Substance: FINASTERIDE
     Dosage: 5 MG, QD WITH SUPPER
     Route: 048
     Dates: end: 20171107
  14. LINZESS [Concomitant]
     Active Substance: LINACLOTIDE
     Indication: CONSTIPATION
     Dosage: 145 MCG, QD
     Route: 048
  15. NITROSTAT [Concomitant]
     Active Substance: NITROGLYCERIN
     Indication: CHEST PAIN
     Dosage: 0.4 MG, EVERY 5 MIN AS NEEDED
     Route: 060
  16. NEURONTIN [Concomitant]
     Active Substance: GABAPENTIN
     Route: 048
     Dates: end: 20171108
  17. IMDUR [Concomitant]
     Active Substance: ISOSORBIDE MONONITRATE
     Route: 048
     Dates: end: 20171108
  18. FLORANEX [Concomitant]
     Active Substance: LACTOBACILLUS ACIDOPHILUS\LACTOBACILLUS DELBRUECKII SUBSP. BULGARICUS
     Route: 048
     Dates: end: 20171107
  19. PENTASA [Concomitant]
     Active Substance: MESALAMINE
     Route: 048
  20. KLOR-CON [Concomitant]
     Active Substance: POTASSIUM CHLORIDE
     Route: 048
     Dates: end: 20171108
  21. COLACE [Concomitant]
     Active Substance: DOCUSATE SODIUM
     Route: 048
  22. ANTIVERT [Concomitant]
     Active Substance: MECLIZINE HYDROCHLORIDE
     Indication: DIZZINESS
     Route: 048
  23. RAPAFLO [Concomitant]
     Active Substance: SILODOSIN
     Dosage: 8 MG, QD WITH SUPPER
     Route: 048
  24. LIPITOR [Concomitant]
     Active Substance: ATORVASTATIN CALCIUM
     Dosage: 10 MG, QD WITH SUPPER
     Route: 048
     Dates: end: 20171107
  25. BIOTIN [Concomitant]
     Active Substance: BIOTIN
     Dosage: 10000 MCG, QD WITH SUPPER
     Route: 048
     Dates: end: 20171108
  26. DEMADEX [Concomitant]
     Active Substance: TORSEMIDE
     Indication: SWELLING
     Dosage: 50 MG, QD AS NEEDED
     Route: 048
     Dates: end: 20171108
  27. LOPRESSOR [Concomitant]
     Active Substance: METOPROLOL TARTRATE
     Route: 048
  28. MS IR [Concomitant]
     Active Substance: MORPHINE SULFATE
     Indication: PAIN
     Dosage: 15 MG, EVERY 4 HOURS AS NEEDED
     Route: 048
  29. MS CONTIN [Concomitant]
     Active Substance: MORPHINE SULFATE
     Route: 048
  30. VALIUM [Concomitant]
     Active Substance: DIAZEPAM
     Indication: ANXIETY
     Route: 048
  31. PRILOSEC [Concomitant]
     Active Substance: OMEPRAZOLE MAGNESIUM
     Dosage: 20 MG, QD WITH SUPPER
     Route: 048
     Dates: end: 20171107
  32. RANEXA [Concomitant]
     Active Substance: RANOLAZINE
     Route: 048
     Dates: end: 20171023
  33. LEVOTHYROXINE. [Concomitant]
     Active Substance: LEVOTHYROXINE
     Dosage: 75 MCG, QD IN MORNING
     Route: 048
  34. ZOFRAN [Concomitant]
     Active Substance: ONDANSETRON HYDROCHLORIDE
     Indication: VOMITING
     Dosage: 1 DF, EVERY 6 HOURS AS NEEDED
     Route: 060
  35. ZANAFLEX [Concomitant]
     Active Substance: TIZANIDINE HYDROCHLORIDE
     Indication: MUSCLE SPASMS
     Dosage: 2 MG, EVERY 8 HOURS AS NEEDED
     Route: 048

REACTIONS (16)
  - Ischaemic cardiomyopathy [Unknown]
  - Peripheral arterial occlusive disease [Unknown]
  - Cardiac failure congestive [Unknown]
  - Colitis ischaemic [Unknown]
  - Ingrowing nail [Unknown]
  - Pollakiuria [Unknown]
  - Atrial fibrillation [Unknown]
  - Constipation [Unknown]
  - Ventricular tachycardia [Unknown]
  - Hypoxia [Unknown]
  - Gout [Unknown]
  - Neuropathy peripheral [Unknown]
  - Dehydration [Unknown]
  - Hepatitis [Unknown]
  - Gastrooesophageal reflux disease [Unknown]
  - Pyrexia [Unknown]
